FAERS Safety Report 10780771 (Version 1)
Quarter: 2015Q1

REPORT INFORMATION
  Report Type: Spontaneous
  Country: US (occurrence: US)
  Receive Date: 20150210
  Receipt Date: 20150210
  Transmission Date: 20150721
  Serious: No
  Sender: FDA-Public Use
  Company Number: US-GLAXOSMITHKLINE-A1055126A

PATIENT

DRUGS (1)
  1. SIMPLY RIGHT NICOTINE [Suspect]
     Active Substance: NICOTINE
     Indication: EX-TOBACCO USER
     Route: 062
     Dates: start: 201310

REACTIONS (6)
  - Scratch [Unknown]
  - Skin ulcer [Unknown]
  - Application site erythema [Not Recovered/Not Resolved]
  - Application site rash [Unknown]
  - Application site pruritus [Unknown]
  - Application site reaction [Unknown]
